FAERS Safety Report 26206994 (Version 1)
Quarter: 2025Q4

REPORT INFORMATION
  Report Type: Spontaneous
  Country: KR (occurrence: KR)
  Receive Date: 20251229
  Receipt Date: 20251229
  Transmission Date: 20260117
  Serious: Yes (Other)
  Sender: BRISTOL-MYERS SQUIBB COMPANY
  Company Number: KR-BRISTOL-MYERS SQUIBB COMPANY-2025-172483

PATIENT
  Age: 28 Year
  Sex: Female

DRUGS (1)
  1. SPRYCEL [Suspect]
     Active Substance: DASATINIB
     Indication: Product used for unknown indication

REACTIONS (6)
  - Drug intolerance [Unknown]
  - Neutropenia [Unknown]
  - Palpitations [Unknown]
  - Thrombocytopenia [Unknown]
  - Treatment failure [Unknown]
  - Wolff-Parkinson-White syndrome [Unknown]
